FAERS Safety Report 13420283 (Version 1)
Quarter: 2017Q2

REPORT INFORMATION
  Report Type: Report from Study
  Country: None (occurrence: CA)
  Receive Date: 20170407
  Receipt Date: 20170407
  Transmission Date: 20170830
  Serious: Yes (Hospitalization, Other)
  Sender: FDA-Public Use
  Company Number: CA-ABBVIE-16K-028-1808085-00

PATIENT
  Age: 49 Year
  Sex: Female

DRUGS (1)
  1. HUMIRA [Suspect]
     Active Substance: ADALIMUMAB
     Indication: CROHN^S DISEASE
     Route: 058
     Dates: start: 20160808, end: 20170110

REACTIONS (25)
  - Aphthous ulcer [Unknown]
  - Cystitis [Recovered/Resolved]
  - Hepatic steatosis [Unknown]
  - Cystitis [Not Recovered/Not Resolved]
  - Headache [Not Recovered/Not Resolved]
  - Bronchitis [Not Recovered/Not Resolved]
  - Kidney fibrosis [Unknown]
  - Hospitalisation [Unknown]
  - Weight increased [Not Recovered/Not Resolved]
  - Oral herpes [Unknown]
  - Rash [Not Recovered/Not Resolved]
  - Drug ineffective [Not Recovered/Not Resolved]
  - Intervertebral disc degeneration [Unknown]
  - Computerised tomogram abdomen abnormal [Unknown]
  - Vomiting [Unknown]
  - Pyelocaliectasis [Unknown]
  - Acne [Not Recovered/Not Resolved]
  - Alopecia [Not Recovered/Not Resolved]
  - Viral upper respiratory tract infection [Not Recovered/Not Resolved]
  - Nephrocalcinosis [Unknown]
  - Sepsis [Unknown]
  - Dystrophic calcification [Unknown]
  - Atelectasis [Unknown]
  - Splenomegaly [Unknown]
  - Nephrolithiasis [Unknown]

NARRATIVE: CASE EVENT DATE: 2016
